FAERS Safety Report 10268482 (Version 3)
Quarter: 2015Q1

REPORT INFORMATION
  Report Type: Spontaneous
  Country: GB (occurrence: GB)
  Receive Date: 20140630
  Receipt Date: 20150310
  Transmission Date: 20150720
  Serious: Yes (Other)
  Sender: FDA-Public Use
  Company Number: GB-TEVA-490603ISR

PATIENT
  Sex: Female

DRUGS (1)
  1. ALENDRONIC ACID [Suspect]
     Active Substance: ALENDRONIC ACID
     Indication: OSTEOPOROSIS
     Route: 048
     Dates: start: 201312

REACTIONS (10)
  - Herpes simplex [Unknown]
  - Tremor [Unknown]
  - Gastrooesophageal reflux disease [Unknown]
  - Optic neuritis [Not Recovered/Not Resolved]
  - Photosensitivity reaction [Unknown]
  - Tension headache [Unknown]
  - Dizziness [Recovered/Resolved]
  - Ulcerative keratitis [Recovering/Resolving]
  - Eye pain [Unknown]
  - Ophthalmic herpes simplex [Unknown]
